FAERS Safety Report 9985528 (Version 1)
Quarter: 2014Q1

REPORT INFORMATION
  Report Type: Report from Study
  Country: US (occurrence: US)
  Receive Date: 20140307
  Receipt Date: 20140307
  Transmission Date: 20141002
  Serious: Yes (Other)
  Sender: FDA-Public Use
  Company Number: US-ABBVIE-14P-163-1206524-00

PATIENT
  Age: 34 Year
  Sex: Male
  Weight: 90.8 kg

DRUGS (6)
  1. HUMIRA [Suspect]
     Indication: CROHN^S DISEASE
     Dates: start: 20140110
  2. LEVOFLOXACIN [Suspect]
     Indication: PRODUCT USED FOR UNKNOWN INDICATION
     Dates: start: 201402
  3. METHOTREXATE [Concomitant]
     Indication: ARTHRITIS ENTEROPATHIC
  4. AMLODIPINE [Concomitant]
     Indication: HYPERTENSION
  5. TRAZODONE [Concomitant]
     Indication: SLEEP DISORDER THERAPY
  6. TRAZODONE [Concomitant]
     Indication: CONCUSSION

REACTIONS (14)
  - Pleuritic pain [Not Recovered/Not Resolved]
  - Lupus-like syndrome [Not Recovered/Not Resolved]
  - Myalgia [Not Recovered/Not Resolved]
  - Insomnia [Unknown]
  - Sinusitis [Recovered/Resolved]
  - Arthritis [Unknown]
  - Drug ineffective [Unknown]
  - Dyspnoea [Unknown]
  - Chest discomfort [Not Recovered/Not Resolved]
  - Device issue [Unknown]
  - Incorrect dose administered [Unknown]
  - Injection site pain [Not Recovered/Not Resolved]
  - Pain [Not Recovered/Not Resolved]
  - Pleural effusion [Not Recovered/Not Resolved]
